FAERS Safety Report 4996284-1 (Version None)
Quarter: 2006Q2

REPORT INFORMATION
  Report Type: 
  Country: None (occurrence: None)
  Receive Date: 20060505
  Receipt Date: 20060208
  Transmission Date: 20061013
  Serious: Yes (Death)
  Sender: FDA-Public Use
  Company Number: 06-0057PO

PATIENT
  Age: 69 Year
  Sex: Male

DRUGS (3)
  1. MEFENAMIC ACID 250MG [Suspect]
     Indication: NASOPHARYNGITIS
     Dosage: 250 MG, TID, PO
     Route: 048
  2. CIPROFLOXACIN HYDROCHLORIDE [Suspect]
     Indication: NASOPHARYNGITIS
     Dosage: 100 MG, TID, PO
     Route: 048
     Dates: start: 20041208, end: 20041210
  3. CASANMIL (NIFEDIPINE) [Concomitant]

REACTIONS (7)
  - CONDITION AGGRAVATED [None]
  - HAEMODIALYSIS [None]
  - HEPATIC FAILURE [None]
  - HEPATITIS FULMINANT [None]
  - PULMONARY OEDEMA [None]
  - RALES [None]
  - RENAL FAILURE CHRONIC [None]
